FAERS Safety Report 8134314-9 (Version None)
Quarter: 2012Q1

REPORT INFORMATION
  Report Type: 
  Country: None (occurrence: None)
  Receive Date: 20120210
  Receipt Date: 20120126
  Transmission Date: 20120608
  Serious: Yes (Death, Disabling)
  Sender: FDA-Public Use
  Company Number: 2011AT000442

PATIENT
  Age: 40 Year
  Sex: Female

DRUGS (15)
  1. ZOSYN [Suspect]
     Indication: PNEUMONIA
     Dosage: 4.5 GM;TID
     Dates: start: 20111003, end: 20111004
  2. VEMAS S [Concomitant]
  3. GANCICLOVIR [Suspect]
     Indication: CYTOMEGALOVIRUS INFECTION
     Dosage: 300 MG;BID;IVDRP
     Route: 041
     Dates: start: 20110928, end: 20111007
  4. PREDNISOLONE [Concomitant]
  5. SULFAMETHOXAZOLE [Concomitant]
  6. ALPROSTADIL [Suspect]
     Indication: ARTERIAL OCCLUSIVE DISEASE
     Dosage: 60 UG;BID;IVDRP
     Route: 041
     Dates: start: 20110928, end: 20111004
  7. ALPROSTADIL [Suspect]
     Indication: SYSTEMIC LUPUS ERYTHEMATOSUS
     Dosage: 60 UG;BID;IVDRP
     Route: 041
     Dates: start: 20110928, end: 20111004
  8. ONEALFA [Concomitant]
  9. ASPARA-CA [Concomitant]
  10. LIPITOR [Concomitant]
  11. CAPROCIN /00027702/ [Concomitant]
  12. URSO /00465701/ [Concomitant]
  13. PROCYLIN [Concomitant]
  14. SENNOSIDE /00571902/ [Concomitant]
  15. LANSOPRAZOLE [Concomitant]

REACTIONS (28)
  - PNEUMONIA CYTOMEGALOVIRAL [None]
  - DISSEMINATED INTRAVASCULAR COAGULATION [None]
  - BLOOD LACTATE DEHYDROGENASE INCREASED [None]
  - CONTINUOUS HAEMODIAFILTRATION [None]
  - PULMONARY THROMBOSIS [None]
  - HAEMATOCRIT DECREASED [None]
  - BLOOD ALKALINE PHOSPHATASE INCREASED [None]
  - DYSPNOEA EXERTIONAL [None]
  - HAEMOPTYSIS [None]
  - HYPOXIA [None]
  - INTERSTITIAL LUNG DISEASE [None]
  - BLOOD SODIUM DECREASED [None]
  - ACUTE MYOCARDIAL INFARCTION [None]
  - PROTHROMBIN TIME PROLONGED [None]
  - BLOOD UREA INCREASED [None]
  - BLOOD CREATININE INCREASED [None]
  - DISEASE PROGRESSION [None]
  - MULTI-ORGAN FAILURE [None]
  - SINUS TACHYCARDIA [None]
  - RESPIRATORY ACIDOSIS [None]
  - OPPORTUNISTIC INFECTION [None]
  - BLOOD ALBUMIN DECREASED [None]
  - BLOOD BILIRUBIN INCREASED [None]
  - HYPOCAPNIA [None]
  - PNEUMOCYSTIS JIROVECI PNEUMONIA [None]
  - HAEMOGLOBIN DECREASED [None]
  - ASPARTATE AMINOTRANSFERASE INCREASED [None]
  - CARDIAC ARREST [None]
